FAERS Safety Report 13568607 (Version 1)
Quarter: 2017Q2

REPORT INFORMATION
  Report Type: Spontaneous
  Country: US (occurrence: US)
  Receive Date: 20170522
  Receipt Date: 20170522
  Transmission Date: 20170830
  Serious: Yes (Hospitalization)
  Sender: FDA-Public Use
  Company Number: None

PATIENT
  Age: 22 Year
  Sex: Female
  Weight: 66.15 kg

DRUGS (1)
  1. SUBOXONE [Suspect]
     Active Substance: BUPRENORPHINE HYDROCHLORIDE\NALOXONE HYDROCHLORIDE
     Indication: DRUG USE DISORDER
     Route: 048
     Dates: start: 20170516, end: 20170522

REACTIONS (5)
  - Swelling [None]
  - Hypersensitivity [None]
  - Pyrexia [None]
  - Blister [None]
  - Product dosage form issue [None]

NARRATIVE: CASE EVENT DATE: 20170516
